FAERS Safety Report 11167712 (Version 1)
Quarter: 2015Q2

REPORT INFORMATION
  Report Type: Report from Study
  Country: US (occurrence: US)
  Receive Date: 20150605
  Receipt Date: 20150605
  Transmission Date: 20150821
  Serious: Yes (Other)
  Sender: FDA-Public Use
  Company Number: US-ABBVIE-15K-163-1401794-00

PATIENT
  Age: 46 Year
  Sex: Female
  Weight: 64.47 kg

DRUGS (9)
  1. SYMBICORT [Concomitant]
     Active Substance: BUDESONIDE\FORMOTEROL FUMARATE DIHYDRATE
     Indication: PRODUCT USED FOR UNKNOWN INDICATION
  2. HUMIRA [Suspect]
     Active Substance: ADALIMUMAB
     Route: 065
  3. ALBUTEROL. [Concomitant]
     Active Substance: ALBUTEROL
     Indication: ASTHMA
  4. LACTOBACILLUS [Concomitant]
     Active Substance: LACTOBACILLUS ACIDOPHILUS
     Indication: PRODUCT USED FOR UNKNOWN INDICATION
  5. SIMVASTATIN. [Concomitant]
     Active Substance: SIMVASTATIN
     Indication: BLOOD CHOLESTEROL INCREASED
  6. HUMIRA [Suspect]
     Active Substance: ADALIMUMAB
     Indication: CROHN^S DISEASE
     Route: 065
     Dates: start: 201212, end: 201212
  7. METOPROLOL [Concomitant]
     Active Substance: METOPROLOL
     Indication: TACHYCARDIA
  8. HUMIRA [Suspect]
     Active Substance: ADALIMUMAB
     Route: 065
  9. ALBUTEROL. [Concomitant]
     Active Substance: ALBUTEROL
     Indication: GRANULOMA

REACTIONS (8)
  - Dizziness [Recovered/Resolved]
  - Weight increased [Recovered/Resolved]
  - Memory impairment [Not Recovered/Not Resolved]
  - Sinus disorder [Not Recovered/Not Resolved]
  - Nasal congestion [Not Recovered/Not Resolved]
  - Headache [Not Recovered/Not Resolved]
  - Vision blurred [Recovered/Resolved]
  - Rash pruritic [Not Recovered/Not Resolved]

NARRATIVE: CASE EVENT DATE: 201212
